FAERS Safety Report 8026361-2 (Version None)
Quarter: 2012Q1

REPORT INFORMATION
  Report Type: 
  Country: None (occurrence: None)
  Receive Date: 20120105
  Receipt Date: 20111229
  Transmission Date: 20120608
  Serious: Yes (Hospitalization, Other)
  Sender: FDA-Public Use
  Company Number: US-ABBOTT-11P-163-0887534-00

PATIENT
  Sex: Female
  Weight: 79.904 kg

DRUGS (9)
  1. HUMIRA [Suspect]
     Indication: PSORIATIC ARTHROPATHY
  2. METHOTREXATE [Concomitant]
     Indication: RHEUMATOID ARTHRITIS
  3. METHADONE HCL [Concomitant]
     Indication: PAIN
  4. LYRICA [Concomitant]
     Indication: PAIN
  5. FOLIC ACID [Concomitant]
     Indication: RHEUMATOID ARTHRITIS
  6. HUMIRA [Suspect]
     Indication: RHEUMATOID ARTHRITIS
     Dates: start: 20100401
  7. METHOTREXATE [Concomitant]
     Indication: PSORIATIC ARTHROPATHY
  8. ATENOLOL [Concomitant]
     Indication: HYPERTENSION
  9. CYCLOBENZAPRINE [Concomitant]
     Indication: MUSCLE RELAXANT THERAPY

REACTIONS (4)
  - BACK PAIN [None]
  - ARTHRALGIA [None]
  - OSTEOARTHRITIS [None]
  - CHONDROPATHY [None]
